FAERS Safety Report 10228173 (Version 1)
Quarter: 2014Q2

REPORT INFORMATION
  Report Type: Spontaneous
  Country: FR (occurrence: FR)
  Receive Date: 20140610
  Receipt Date: 20140610
  Transmission Date: 20141212
  Serious: Yes (Other)
  Sender: FDA-Public Use
  Company Number: FR-WATSON-2014-12662

PATIENT
  Age: 17 Year
  Sex: Female

DRUGS (7)
  1. METHOTREXATE (UNKNOWN) [Suspect]
     Indication: OSTEOSARCOMA
     Dosage: 12000 MG/M2, UNK
     Route: 042
  2. VANCOMYCIN (UNKNOWN) [Suspect]
     Indication: STAPHYLOCOCCAL INFECTION
     Dosage: UNKNOWN
     Route: 065
  3. IFOSFAMIDE [Suspect]
     Indication: OSTEOSARCOMA
     Dosage: 3000 MG/M2, UNK
     Route: 065
  4. ETOPOSIDE [Concomitant]
     Indication: OSTEOSARCOMA
     Dosage: 75 MG/M2, UNK
     Route: 065
  5. FOLINIC ACID [Concomitant]
     Indication: PRODUCT USED FOR UNKNOWN INDICATION
     Dosage: 12 MG/M2, Q6H
     Route: 065
  6. UROMITEXAN [Concomitant]
     Indication: PRODUCT USED FOR UNKNOWN INDICATION
     Dosage: 3600 MG/M2, DAILY
     Route: 065
  7. FOSFOMYCIN [Concomitant]
     Indication: STAPHYLOCOCCAL INFECTION
     Dosage: UNKNOWN
     Route: 065

REACTIONS (8)
  - Encephalopathy [Recovered/Resolved]
  - Deafness bilateral [Recovered/Resolved]
  - Cerebellar syndrome [Recovered/Resolved]
  - Tinnitus [Recovered/Resolved]
  - Hyperreflexia [Recovered/Resolved]
  - Blood creatinine increased [Recovered/Resolved]
  - Blood urea increased [Recovered/Resolved]
  - Overdose [Unknown]
